FAERS Safety Report 16699768 (Version 1)
Quarter: 2019Q3

REPORT INFORMATION
  Report Type: Spontaneous
  Country: US (occurrence: US)
  Receive Date: 20190813
  Receipt Date: 20190813
  Transmission Date: 20191004
  Serious: No
  Sender: FDA-Public Use
  Company Number: PHEH2019US032742

PATIENT
  Sex: Male

DRUGS (1)
  1. CLOTRIMAZOLE AND BETAMETHASONE [Suspect]
     Active Substance: BETAMETHASONE\CLOTRIMAZOLE
     Indication: RASH
     Dosage: PRESCRIBED TO USE TWICE A DAY BUT SOMETIMES USED THREE TIMES DAILY
     Route: 061
     Dates: start: 20190802

REACTIONS (3)
  - Inappropriate schedule of product administration [Unknown]
  - Pruritus [Recovered/Resolved]
  - Therapeutic product effect incomplete [Unknown]
